FAERS Safety Report 23605967 (Version 1)
Quarter: 2024Q1

REPORT INFORMATION
  Report Type: Spontaneous
  Country: DE (occurrence: None)
  Receive Date: 20240307
  Receipt Date: 20240307
  Transmission Date: 20240410
  Serious: Yes (Other)
  Sender: FDA-Public Use
  Company Number: DE-ROCHE-3510988

PATIENT
  Sex: Male

DRUGS (1)
  1. OCREVUS [Suspect]
     Active Substance: OCRELIZUMAB
     Indication: Relapsing multiple sclerosis
     Route: 065
     Dates: start: 202109

REACTIONS (5)
  - Therapeutic response decreased [Unknown]
  - Relapsing multiple sclerosis [Unknown]
  - CD19 lymphocytes decreased [Recovered/Resolved]
  - Gait disturbance [Unknown]
  - Secondary progressive multiple sclerosis [Unknown]
